FAERS Safety Report 6735053-9 (Version None)
Quarter: 2010Q2

REPORT INFORMATION
  Report Type: 
  Country: None (occurrence: None)
  Receive Date: 20100521
  Receipt Date: 20100510
  Transmission Date: 20101027
  Serious: Yes (Other)
  Sender: FDA-Public Use
  Company Number: CA-JNJFOC-20100504723

PATIENT
  Sex: Female
  Weight: 84 kg

DRUGS (4)
  1. REMICADE [Suspect]
     Indication: CROHN'S DISEASE
     Route: 042
  2. SULFASALAZINE [Concomitant]
     Route: 048
  3. GOLD [Concomitant]
     Dosage: SHOTS
     Route: 050
  4. VITAMIN B COMPLEX TAB [Concomitant]
     Dosage: SHOTS
     Route: 050

REACTIONS (1)
  - NEPHROLITHIASIS [None]
